FAERS Safety Report 6647824-8 (Version None)
Quarter: 2010Q1

REPORT INFORMATION
  Report Type: 
  Country: None (occurrence: None)
  Receive Date: 20100318
  Receipt Date: 20100303
  Transmission Date: 20100710
  Serious: Yes (Hospitalization)
  Sender: FDA-Public Use
  Company Number: 2010000634

PATIENT
  Age: 70 Year
  Sex: Male

DRUGS (6)
  1. ERLOTINIB HYDROCHLORIDE [Suspect]
     Indication: NON-SMALL CELL LUNG CANCER
     Dosage: 150 MG, QD, ORAL
     Route: 048
     Dates: start: 20100116, end: 20100214
  2. BETALOC (METOPROLOL TARTRATE) [Concomitant]
  3. PRESTARIUM (PERINDOPRIL) [Concomitant]
  4. SPIRONOL (SPIRONOLACTONE) [Concomitant]
  5. POLOCARD [Concomitant]
  6. SIMVASTATIN [Concomitant]

REACTIONS (1)
  - PULMONARY EMBOLISM [None]
